FAERS Safety Report 8095828-3 (Version None)
Quarter: 2011Q4

REPORT INFORMATION
  Report Type: 
  Country: None (occurrence: None)
  Receive Date: 20111222
  Receipt Date: 20111013
  Transmission Date: 20120403
  Serious: Yes (Hospitalization)
  Sender: FDA-Public Use
  Company Number: UTC-011244

PATIENT
  Age: 69 Year
  Sex: Female
  Weight: 59.09 kg

DRUGS (7)
  1. DIURETICS (DIURETICS) [Concomitant]
  2. REVATIO [Concomitant]
  3. TYVASO [Suspect]
     Indication: PULMONARY ARTERIAL HYPERTENSION
     Dosage: 288 MCG (72 MCG, 4 IN 1 D), INHALATION
     Route: 055
     Dates: start: 20100520
  4. SPIRIVA [Concomitant]
  5. ADVAIR DISKUS 100/50 [Concomitant]
  6. COUMADIN [Concomitant]
  7. XOPENEX [Concomitant]

REACTIONS (3)
  - DYSPNOEA [None]
  - CONDITION AGGRAVATED [None]
  - PULMONARY HYPERTENSION [None]
